FAERS Safety Report 5989716-3 (Version None)
Quarter: 2008Q4

REPORT INFORMATION
  Report Type: 
  Country: None (occurrence: None)
  Receive Date: 20081210
  Receipt Date: 20081203
  Transmission Date: 20090506
  Serious: Yes (Other)
  Sender: FDA-Public Use
  Company Number: US-B.I. PHARMACEUTICALS,INC./RIDGEFIELD-2008-DE-07440GD

PATIENT
  Sex: Male

DRUGS (11)
  1. CLONIDINE [Suspect]
     Indication: SELF INJURIOUS BEHAVIOUR
  2. TRAZODONE HCL [Suspect]
     Indication: SELF INJURIOUS BEHAVIOUR
  3. GABAPENTIN [Suspect]
     Indication: SELF INJURIOUS BEHAVIOUR
  4. HALOPERIDOL [Suspect]
     Indication: SELF INJURIOUS BEHAVIOUR
  5. OLANZAPINE [Suspect]
     Indication: SELF INJURIOUS BEHAVIOUR
  6. GUANFACINE HYDROCHLORIDE [Suspect]
     Indication: SELF INJURIOUS BEHAVIOUR
  7. NALTREXONE [Suspect]
     Indication: SELF INJURIOUS BEHAVIOUR
  8. VENLAFAXINE HCL [Suspect]
     Indication: SELF INJURIOUS BEHAVIOUR
  9. CLOMIPRAMINE HCL [Suspect]
     Indication: SELF INJURIOUS BEHAVIOUR
  10. METHYLPHENIDATE HCL [Suspect]
     Indication: SELF INJURIOUS BEHAVIOUR
  11. FLUOXETINE [Suspect]
     Indication: SELF INJURIOUS BEHAVIOUR

REACTIONS (1)
  - DRUG INEFFECTIVE [None]
